FAERS Safety Report 15743879 (Version 1)
Quarter: 2018Q4

REPORT INFORMATION
  Report Type: Spontaneous
  Country: US (occurrence: US)
  Receive Date: 20181220
  Receipt Date: 20181220
  Transmission Date: 20190205
  Serious: No
  Sender: FDA-Public Use
  Company Number: US-PFIZER INC-2018518442

PATIENT
  Age: 69 Year
  Sex: Male
  Weight: 113.3 kg

DRUGS (2)
  1. LYRICA [Suspect]
     Active Substance: PREGABALIN
     Indication: PERIPHERAL SWELLING
     Dosage: 300 MG, 1X/DAY
     Dates: start: 201809
  2. LYRICA [Suspect]
     Active Substance: PREGABALIN
     Indication: NEUROPATHY PERIPHERAL
     Dosage: 225 MG, 3X/DAY(ONE IN THE MORNING AND 2 AT NIGHT)
     Dates: start: 2017

REACTIONS (3)
  - Blood cholesterol increased [Unknown]
  - Drug effect incomplete [Unknown]
  - Somnolence [Unknown]
